FAERS Safety Report 9380264 (Version 1)
Quarter: 2013Q3

REPORT INFORMATION
  Report Type: Spontaneous
  Country: GB (occurrence: GB)
  Receive Date: 20130702
  Receipt Date: 20130702
  Transmission Date: 20140515
  Serious: Yes (Hospitalization, Disabling)
  Sender: FDA-Public Use
  Company Number: GB-GLAXOSMITHKLINE-B0903056A

PATIENT
  Age: 53 Year
  Sex: Female
  Weight: 105 kg

DRUGS (12)
  1. ORLISTAT [Suspect]
     Indication: WEIGHT DECREASED
     Dosage: 360MG PER DAY
     Route: 048
     Dates: start: 201211, end: 201304
  2. OXYBUTYNIN [Concomitant]
  3. RAMIPRIL [Concomitant]
  4. ADALAT [Concomitant]
  5. PRAVASTATIN [Concomitant]
  6. DOXAZOSIN [Concomitant]
  7. PROCYCLIDINE [Concomitant]
  8. GLICLAZIDE [Concomitant]
  9. METFORMIN [Concomitant]
  10. ASPIRIN [Concomitant]
  11. RISPERIDONE [Concomitant]
  12. LANSOPRAZOLE [Concomitant]

REACTIONS (4)
  - Renal failure acute [Not Recovered/Not Resolved]
  - Crystal nephropathy [Not Recovered/Not Resolved]
  - Kidney fibrosis [Not Recovered/Not Resolved]
  - Malaise [Not Recovered/Not Resolved]
